FAERS Safety Report 11870479 (Version 1)
Quarter: 2015Q4

REPORT INFORMATION
  Report Type: Spontaneous
  Country: US (occurrence: None)
  Receive Date: 20151224
  Receipt Date: 20151224
  Transmission Date: 20160305
  Serious: Yes (Other)
  Sender: FDA-Public Use
  Company Number: None

PATIENT
  Age: 63 Year
  Sex: Male

DRUGS (1)
  1. CAPECITABINE 500MG TAB TEVA [Suspect]
     Active Substance: CAPECITABINE
     Indication: RECTAL CANCER
     Dosage: BID X14 DAYS/CYCLE
     Route: 048
     Dates: start: 20150805, end: 20151223

REACTIONS (2)
  - Rectal cancer [None]
  - Disease progression [None]

NARRATIVE: CASE EVENT DATE: 20151223
